FAERS Safety Report 8379856-6 (Version None)
Quarter: 2012Q2

REPORT INFORMATION
  Report Type: 
  Country: None (occurrence: None)
  Receive Date: 20120523
  Receipt Date: 20120518
  Transmission Date: 20120825
  Serious: Yes (Hospitalization)
  Sender: FDA-Public Use
  Company Number: GB-PFIZER INC-2012120828

PATIENT
  Age: 32 Year
  Sex: Male

DRUGS (4)
  1. SULFASALAZINE [Suspect]
     Indication: RHEUMATOID ARTHRITIS
     Dosage: WK1: ONE IN EVE
     Route: 048
     Dates: start: 20120418, end: 20120502
  2. SULFASALAZINE [Suspect]
     Dosage: WK4: TWO TWICE DAILY
     Route: 048
     Dates: end: 20120502
  3. SULFASALAZINE [Suspect]
     Dosage: WK2: ONE TWICE DAILY
     Route: 048
  4. SULFASALAZINE [Suspect]
     Dosage: WK3: ONE IN MANE, TWO IN EVE;
     Route: 048

REACTIONS (1)
  - MYOCARDITIS [None]
